FAERS Safety Report 16060815 (Version 1)
Quarter: 2019Q1

REPORT INFORMATION
  Report Type: Spontaneous
  Country: CN (occurrence: CN)
  Receive Date: 20190312
  Receipt Date: 20190312
  Transmission Date: 20190418
  Serious: Yes (Other)
  Sender: FDA-Public Use
  Company Number: CN-ROCHE-2250589

PATIENT
  Age: 48 Year
  Sex: Male

DRUGS (22)
  1. XELODA [Suspect]
     Active Substance: CAPECITABINE
     Route: 048
     Dates: start: 20121215, end: 20131126
  2. CPT-11 [Concomitant]
     Active Substance: IRINOTECAN HYDROCHLORIDE
     Route: 065
     Dates: start: 20160819, end: 20170601
  3. PEMBROLIZUMAB. [Concomitant]
     Active Substance: PEMBROLIZUMAB
     Indication: ADENOCARCINOMA
     Dosage: Q21D
     Route: 065
     Dates: start: 20170829
  4. XELODA [Suspect]
     Active Substance: CAPECITABINE
     Route: 048
     Dates: start: 20120612, end: 20120823
  5. AVASTIN [Suspect]
     Active Substance: BEVACIZUMAB
     Indication: ADENOCARCINOMA
     Dosage: DAY 1
     Route: 042
     Dates: start: 20111218, end: 20120427
  6. RALTITREXED [Concomitant]
     Active Substance: RALTITREXED
     Route: 065
     Dates: start: 20140130, end: 20160720
  7. RAMUCIRUMAB [Concomitant]
     Active Substance: RAMUCIRUMAB
     Indication: ADENOCARCINOMA
  8. OXALIPLATIN. [Concomitant]
     Active Substance: OXALIPLATIN
     Indication: ADENOCARCINOMA
     Route: 065
     Dates: start: 20120523
  9. XELODA [Suspect]
     Active Substance: CAPECITABINE
     Route: 048
     Dates: start: 20120523
  10. AVASTIN [Suspect]
     Active Substance: BEVACIZUMAB
     Route: 042
     Dates: start: 20121215, end: 20131126
  11. TRASTUZUMAB. [Suspect]
     Active Substance: TRASTUZUMAB
     Indication: ADENOCARCINOMA
     Route: 065
  12. PERTUZUMAB. [Suspect]
     Active Substance: PERTUZUMAB
     Indication: ADENOCARCINOMA
     Route: 042
  13. AVASTIN [Suspect]
     Active Substance: BEVACIZUMAB
     Route: 042
     Dates: start: 20120523, end: 20120823
  14. L-OHP [Concomitant]
     Active Substance: OXALIPLATIN
     Dosage: ON DAY 1
     Route: 065
     Dates: start: 20111127
  15. XELODA [Suspect]
     Active Substance: CAPECITABINE
     Indication: ADENOCARCINOMA
     Dosage: 14 DAYS
     Route: 048
     Dates: start: 20111127, end: 20120427
  16. C-225 [Concomitant]
     Route: 065
     Dates: start: 20160819, end: 20170601
  17. AVASTIN [Suspect]
     Active Substance: BEVACIZUMAB
     Dosage: 400/500MG
     Route: 042
     Dates: start: 20120915, end: 20121118
  18. AVASTIN [Suspect]
     Active Substance: BEVACIZUMAB
     Route: 042
     Dates: start: 20171118
  19. CPT-11 [Concomitant]
     Active Substance: IRINOTECAN HYDROCHLORIDE
     Indication: ADENOCARCINOMA
     Route: 065
     Dates: start: 20140130, end: 20160720
  20. REGORAFENIB. [Suspect]
     Active Substance: REGORAFENIB
     Indication: ADENOCARCINOMA
     Dosage: ON DAY1-DAY21, Q28D
     Route: 065
     Dates: start: 20170621, end: 20170808
  21. CPT-11 [Concomitant]
     Active Substance: IRINOTECAN HYDROCHLORIDE
     Route: 065
     Dates: start: 20171118
  22. ZIV-AFLIBERCEPT [Concomitant]
     Active Substance: ZIV-AFLIBERCEPT
     Indication: ADENOCARCINOMA

REACTIONS (6)
  - Renal impairment [Unknown]
  - Neuropathy peripheral [Unknown]
  - Protein urine present [Unknown]
  - Asthenia [Unknown]
  - Palmar-plantar erythrodysaesthesia syndrome [Unknown]
  - Bone marrow toxicity [Unknown]
